FAERS Safety Report 13551167 (Version 2)
Quarter: 2017Q2

REPORT INFORMATION
  Report Type: Spontaneous
  Country: JP (occurrence: JP)
  Receive Date: 20170516
  Receipt Date: 20170525
  Transmission Date: 20170830
  Serious: Yes (Hospitalization)
  Sender: FDA-Public Use
  Company Number: US-ASTRAZENECA-2017SE43826

PATIENT
  Age: 3 Year
  Sex: Female

DRUGS (4)
  1. BLOPRESS [Suspect]
     Active Substance: CANDESARTAN CILEXETIL
     Indication: RENOVASCULAR HYPERTENSION
     Dosage: 0.6MG/KG UNKNOWN
     Route: 048
  2. ENALAPRIL [Concomitant]
     Active Substance: ENALAPRIL
     Indication: RENOVASCULAR HYPERTENSION
     Dosage: 5.0MG/KG UNKNOWN
     Route: 048
  3. NIFEDIPINE. [Concomitant]
     Active Substance: NIFEDIPINE
     Indication: RENOVASCULAR HYPERTENSION
     Dosage: 5.0MG/KG UNKNOWN
     Route: 048
  4. AMLODIPINE BESILATE [Concomitant]
     Active Substance: AMLODIPINE BESYLATE
     Indication: RENOVASCULAR HYPERTENSION
     Dosage: 10.0MG UNKNOWN
     Route: 048

REACTIONS (3)
  - Nephrotic syndrome [Recovered/Resolved]
  - Off label use [Unknown]
  - Drug administered to patient of inappropriate age [Unknown]

NARRATIVE: CASE EVENT DATE: 20160710
